FAERS Safety Report 23776513 (Version 1)
Quarter: 2024Q2

REPORT INFORMATION
  Report Type: Spontaneous
  Country: US (occurrence: US)
  Receive Date: 20240424
  Receipt Date: 20240424
  Transmission Date: 20240715
  Serious: No
  Sender: FDA-Public Use
  Company Number: US-TEVA-VS-3183370

PATIENT
  Age: 77 Year
  Sex: Female
  Weight: 55.52 kg

DRUGS (1)
  1. AUSTEDO [Suspect]
     Active Substance: DEUTETRABENAZINE
     Indication: Dystonia
     Route: 065

REACTIONS (4)
  - Off label use [Not Recovered/Not Resolved]
  - Type V hyperlipidaemia [Unknown]
  - Cognitive disorder [Unknown]
  - Persistent complex bereavement disorder [Unknown]

NARRATIVE: CASE EVENT DATE: 20230613
